FAERS Safety Report 7063109-2 (Version None)
Quarter: 2010Q4

REPORT INFORMATION
  Report Type: 
  Country: None (occurrence: None)
  Receive Date: 20101026
  Receipt Date: 20100415
  Transmission Date: 20110411
  Serious: No
  Sender: FDA-Public Use
  Company Number: US-PFIZER INC-2010048401

PATIENT
  Age: 78 Year
  Sex: Female

DRUGS (6)
  1. LIPITOR [Suspect]
     Dosage: 10 MG, 1X/DAY
  2. LIPITOR [Suspect]
     Dosage: 10 MG, 1,2 OR 3 TIMES WEEKLY
  3. DIGOXIN [Suspect]
     Dosage: 0.125 MG, UNK
  4. LEVOXYL [Suspect]
     Dosage: 125 UG, UNK
  5. ACETAMINOPHEN [Suspect]
     Dosage: 500 MG, UNK
  6. ZOLPIDEM [Suspect]
     Dosage: 10 MG, UNK

REACTIONS (1)
  - MYALGIA [None]
